FAERS Safety Report 12779759 (Version 3)
Quarter: 2016Q4

REPORT INFORMATION
  Report Type: Spontaneous
  Country: US (occurrence: US)
  Receive Date: 20160926
  Receipt Date: 20161222
  Transmission Date: 20170207
  Serious: Yes (Other)
  Sender: FDA-Public Use
  Company Number: US-PFIZER INC-2016445318

PATIENT
  Age: 55 Year
  Sex: Male

DRUGS (1)
  1. DICLOFENAC SODIUM. [Suspect]
     Active Substance: DICLOFENAC SODIUM
     Dosage: 75 MG, UNK

REACTIONS (2)
  - Flatulence [Recovered/Resolved]
  - Renal impairment [Recovered/Resolved]
